FAERS Safety Report 9992658 (Version 1)
Quarter: 2014Q1

REPORT INFORMATION
  Report Type: Spontaneous
  Country: US (occurrence: US)
  Receive Date: 20140310
  Receipt Date: 20140310
  Transmission Date: 20141002
  Serious: No
  Sender: FDA-Public Use
  Company Number: US-ABBVIE-13P-163-1066532-00

PATIENT
  Age: 38 Year
  Sex: Female
  Weight: 99.88 kg

DRUGS (2)
  1. LUPRON DEPOT [Suspect]
     Indication: ENDOMETRIOSIS
     Dates: start: 201207, end: 201210
  2. UNKNOWN BIRTHCONTROL MEDICATION [Concomitant]
     Indication: CONTRACEPTION

REACTIONS (5)
  - Rheumatoid arthritis [Unknown]
  - Pain in extremity [Recovering/Resolving]
  - Musculoskeletal stiffness [Recovering/Resolving]
  - Rheumatoid factor increased [Unknown]
  - Inflammatory marker increased [Unknown]
